FAERS Safety Report 17963395 (Version 1)
Quarter: 2020Q2

REPORT INFORMATION
  Report Type: Report from Study
  Country: MX (occurrence: MX)
  Receive Date: 20200630
  Receipt Date: 20200630
  Transmission Date: 20200714
  Serious: Yes (Life-Threatening, Hospitalization, Other)
  Sender: FDA-Public Use
  Company Number: NVSC2020MX183665

PATIENT
  Sex: Female

DRUGS (1)
  1. ENTRESTO [Suspect]
     Active Substance: SACUBITRIL\VALSARTAN
     Indication: PRODUCT USED FOR UNKNOWN INDICATION
     Dosage: 200 MG, UNKNOWN
     Route: 065

REACTIONS (7)
  - Diverticulum [Unknown]
  - Decreased appetite [Unknown]
  - Cardiac arrest [Unknown]
  - Delirium [Unknown]
  - Haemorrhoids [Unknown]
  - Dyspnoea [Unknown]
  - Feeling abnormal [Unknown]
